FAERS Safety Report 9038097 (Version 1)
Quarter: 2013Q1

REPORT INFORMATION
  Report Type: Spontaneous
  Country: US (occurrence: US)
  Receive Date: 20130129
  Receipt Date: 20130129
  Transmission Date: 20140127
  Serious: No
  Sender: FDA-Public Use
  Company Number: US-ABBOTT-12P-163-1006407-00

PATIENT
  Sex: Male

DRUGS (1)
  1. LUPRON DEPOT [Suspect]
     Indication: PROSTATE CANCER
     Dosage: UNKNOWN DOSE, SHE WAS NOT SURE IF IT WAS TAKEN EVERY 3 MTHS OR 4 MTHS
     Route: 030
     Dates: start: 2008, end: 2012

REACTIONS (4)
  - Myalgia [Recovered/Resolved]
  - Bone pain [Recovered/Resolved]
  - Arthritis [Not Recovered/Not Resolved]
  - Arthralgia [Recovered/Resolved]
